FAERS Safety Report 16384705 (Version 1)
Quarter: 2019Q2

REPORT INFORMATION
  Report Type: Spontaneous
  Country: US (occurrence: US)
  Receive Date: 20190603
  Receipt Date: 20190603
  Transmission Date: 20190711
  Serious: Yes (Life-Threatening, Hospitalization, Other)
  Sender: FDA-Public Use
  Company Number: US-OXFORD PHARMACEUTICALS, LLC-2019OXF00085

PATIENT
  Age: 57 Year
  Sex: Male

DRUGS (2)
  1. BENAZEPRIL [Suspect]
     Active Substance: BENAZEPRIL HYDROCHLORIDE
     Route: 048
  2. AMLODIPINE [Suspect]
     Active Substance: AMLODIPINE BESYLATE
     Route: 048

REACTIONS (5)
  - Suicide attempt [Recovered/Resolved]
  - Acute kidney injury [Recovered/Resolved]
  - Cardiac arrest [Recovered/Resolved]
  - Shock [Recovered/Resolved]
  - Overdose [Recovered/Resolved]
